FAERS Safety Report 8494634-5 (Version None)
Quarter: 2012Q3

REPORT INFORMATION
  Report Type: 
  Country: None (occurrence: None)
  Receive Date: 20120709
  Receipt Date: 20120627
  Transmission Date: 20120928
  Serious: Yes (Hospitalization)
  Sender: FDA-Public Use
  Company Number: DE-MILLENNIUM PHARMACEUTICALS, INC.-2012-00053

PATIENT

DRUGS (18)
  1. DEXAMETHASONE [Suspect]
     Indication: MULTIPLE MYELOMA
     Dosage: 8 MG, CYCLIC
     Route: 065
     Dates: start: 20100830, end: 20111104
  2. MOXONIDIN [Concomitant]
     Dosage: 0.3 MG, UNK
  3. AMLODIPINE [Concomitant]
     Dosage: 10 MG, BID
  4. FINASTERID ORION [Concomitant]
     Dosage: 5 MG, UNK
  5. VELCADE [Suspect]
     Indication: MULTIPLE MYELOMA
     Dosage: 1.3 MG, CYCLIC
     Route: 042
     Dates: start: 20110830, end: 20111104
  6. METOPROLOL TARTRATE [Concomitant]
  7. RAMIPRIL [Concomitant]
     Dosage: 5 MG, UNK
  8. ALLOPURINOL [Concomitant]
     Dosage: UNK
  9. LEVOTHYROXINE SODIUM [Concomitant]
  10. CALCIVIT D [Concomitant]
  11. PANTOZOL                           /01263202/ [Concomitant]
     Dosage: 80 MG, BID
  12. HYDROMORPHONE HCL [Concomitant]
     Dosage: 8 MG, BID
  13. DECOSTRIOL [Concomitant]
  14. PREDNISONE TAB [Concomitant]
     Dosage: 40 MG, BID
  15. DOXORUBICIN HCL [Suspect]
     Indication: MULTIPLE MYELOMA
     Dosage: 9 MG/M2, CYCLIC
     Route: 042
     Dates: start: 20110830, end: 20111104
  16. TAMSULOSIN HCL [Concomitant]
     Dosage: 0.4 MG, UNK
  17. TORSEMIDE [Concomitant]
     Dosage: 200 MG, BID
  18. FOLSAN [Concomitant]
     Dosage: 5 MG, UNK

REACTIONS (6)
  - GENERAL PHYSICAL HEALTH DETERIORATION [None]
  - INFECTION [None]
  - THROMBOCYTOPENIA [None]
  - ANAEMIA [None]
  - OESOPHAGEAL HAEMORRHAGE [None]
  - DYSPNOEA [None]
